FAERS Safety Report 9492982 (Version 2)
Quarter: 2013Q3

REPORT INFORMATION
  Report Type: Spontaneous
  Country: US (occurrence: US)
  Receive Date: 20130902
  Receipt Date: 20130902
  Transmission Date: 20140515
  Serious: Yes (Hospitalization)
  Sender: FDA-Public Use
  Company Number: US-BIOGENIDEC-2013BI030016

PATIENT
  Age: 41 Year
  Sex: Male

DRUGS (1)
  1. AVONEX [Suspect]
     Indication: MULTIPLE SCLEROSIS
     Route: 030
     Dates: start: 20090409

REACTIONS (7)
  - Spinal fracture [Unknown]
  - Gastric infection [Recovered/Resolved]
  - Large intestine polyp [Unknown]
  - Barrett^s oesophagus [Unknown]
  - Multiple sclerosis relapse [Recovered/Resolved]
  - Pain [Unknown]
  - Central nervous system lesion [Unknown]
